FAERS Safety Report 5303295-5 (Version None)
Quarter: 2007Q2

REPORT INFORMATION
  Report Type: 
  Country: None (occurrence: None)
  Receive Date: 20070420
  Receipt Date: 20070413
  Transmission Date: 20071010
  Serious: No
  Sender: FDA-Public Use
  Company Number: JP-JPN-A200700990

PATIENT
  Age: 75 Year
  Sex: Female
  Weight: 47 kg

DRUGS (7)
  1. RELENZA [Suspect]
     Indication: INFLUENZA
     Dosage: 10MG TWICE PER DAY
     Route: 055
     Dates: start: 20070301, end: 20070302
  2. LIVALO [Concomitant]
     Dosage: 2MG PER DAY
     Route: 048
     Dates: start: 20060921
  3. HALCION [Concomitant]
     Indication: INSOMNIA
     Dosage: .25MG PER DAY
     Route: 048
     Dates: start: 20030220
  4. PROTECADIN [Concomitant]
     Indication: GASTRITIS
     Dosage: 10MG PER DAY
     Route: 048
     Dates: start: 20060710
  5. TOMIRON [Concomitant]
     Indication: COUGH
     Dosage: 300MG PER DAY
     Route: 048
     Dates: start: 20070301, end: 20070305
  6. DASEN [Concomitant]
     Indication: COUGH
     Dosage: 30MG PER DAY
     Route: 048
     Dates: start: 20070301, end: 20070305
  7. MUCOSTA [Concomitant]
     Indication: ABDOMINAL DISCOMFORT
     Dosage: 300MG PER DAY
     Route: 048
     Dates: start: 20070301, end: 20070305

REACTIONS (1)
  - NIGHTMARE [None]
